FAERS Safety Report 21985145 (Version 1)
Quarter: 2023Q1

REPORT INFORMATION
  Report Type: Spontaneous
  Country: BR (occurrence: BR)
  Receive Date: 20230213
  Receipt Date: 20230213
  Transmission Date: 20230418
  Serious: Yes (Hospitalization, Other)
  Sender: FDA-Public Use
  Company Number: BR-009507513-2302BRA002985

PATIENT
  Age: 78 Year
  Sex: Female
  Weight: 77 kg

DRUGS (2)
  1. KEYTRUDA [Suspect]
     Active Substance: PEMBROLIZUMAB
     Dosage: 200 MILLIGRAM, Q3W
     Route: 042
  2. KEYTRUDA [Suspect]
     Active Substance: PEMBROLIZUMAB
     Dosage: 200 MILLIGRAM, Q3W, (CYCLE #2)
     Route: 042
     Dates: start: 20221227, end: 20221227

REACTIONS (6)
  - Cholangitis [Recovered/Resolved]
  - Facial pain [Recovered/Resolved]
  - Face oedema [Recovered/Resolved]
  - C-reactive protein increased [Recovered/Resolved]
  - Sialoadenitis [Unknown]
  - Parotitis [Unknown]

NARRATIVE: CASE EVENT DATE: 20230101
